FAERS Safety Report 4400798-2 (Version None)
Quarter: 2004Q3

REPORT INFORMATION
  Report Type: 
  Country: None (occurrence: None)
  Receive Date: 20040714
  Receipt Date: 20040705
  Transmission Date: 20050211
  Serious: Yes (Death)
  Sender: FDA-Public Use
  Company Number: 2004-115704-NL

PATIENT
  Age: 73 Year
  Sex: Female

DRUGS (6)
  1. MIRTAZAPINE [Suspect]
     Dosage: DP
  2. TRIFLUOPERAZINE HCL [Concomitant]
  3. DIGOXIN [Concomitant]
  4. IPATROPIUM BROMIDE [Concomitant]
  5. LISINOPRIL [Concomitant]
  6. ASPIRIN [Concomitant]

REACTIONS (6)
  - ACIDOSIS [None]
  - CEREBROVASCULAR ACCIDENT [None]
  - HYPERHIDROSIS [None]
  - HYPONATRAEMIA [None]
  - HYPOXIA [None]
  - INCONTINENCE [None]
